FAERS Safety Report 15593625 (Version 9)
Quarter: 2021Q1

REPORT INFORMATION
  Report Type: Spontaneous
  Country: CA (occurrence: CA)
  Receive Date: 20181107
  Receipt Date: 20210212
  Transmission Date: 20210419
  Serious: Yes (Other)
  Sender: FDA-Public Use
  Company Number: CA-CELLTRION INC.-2018CA021632

PATIENT

DRUGS (29)
  1. INFLECTRA [Suspect]
     Active Substance: INFLIXIMAB-DYYB
     Dosage: 575 MG, EVERY 8 WEEKS
     Route: 042
     Dates: start: 20181106, end: 20181106
  2. INFLECTRA [Suspect]
     Active Substance: INFLIXIMAB-DYYB
     Dosage: 575 MG, EVERY 8 WEEKS
     Route: 042
     Dates: start: 20190422, end: 20190422
  3. INFLECTRA [Suspect]
     Active Substance: INFLIXIMAB-DYYB
     Dosage: 600 MG EVERY 6 WEEKS
     Route: 042
     Dates: start: 20201113, end: 20201113
  4. METHOTREXATE. [Concomitant]
     Active Substance: METHOTREXATE
     Dosage: UNK
  5. INFLECTRA [Suspect]
     Active Substance: INFLIXIMAB-DYYB
     Indication: CROHN^S DISEASE
     Dosage: 522 MG, EVERY (Q) 0, 2, 6 WEEKS, THEN EVERY 8 WEEKS
     Route: 042
     Dates: start: 20170710, end: 20180530
  6. INFLECTRA [Suspect]
     Active Substance: INFLIXIMAB-DYYB
     Dosage: 522 MG, EVERY (Q) 0, 2, 6 WEEKS, THEN EVERY 8 WEEKS
     Route: 042
     Dates: start: 20180530, end: 20180530
  7. INFLECTRA [Suspect]
     Active Substance: INFLIXIMAB-DYYB
     Dosage: 575 MG, EVERY 6 WEEKS
     Route: 042
     Dates: start: 20190715, end: 20190715
  8. ACETAMINOPHEN. [Concomitant]
     Active Substance: ACETAMINOPHEN
     Indication: PREMEDICATION
     Dosage: 325 MG
     Dates: start: 20200817, end: 20200817
  9. ACETAMINOPHEN. [Concomitant]
     Active Substance: ACETAMINOPHEN
     Dosage: UNK
  10. INFLECTRA [Suspect]
     Active Substance: INFLIXIMAB-DYYB
     Dosage: 575 MG, EVERY 8 WEEKS
     Route: 042
     Dates: start: 20181217, end: 20181217
  11. INFLECTRA [Suspect]
     Active Substance: INFLIXIMAB-DYYB
     Dosage: 515 MG, EVERY 8 WEEKS
     Route: 042
     Dates: start: 20180725, end: 20180725
  12. INFLECTRA [Suspect]
     Active Substance: INFLIXIMAB-DYYB
     Dosage: 600 MG OR 5MG/KG EVERY 6 WEEKS
     Route: 042
     Dates: start: 20190906
  13. INFLECTRA [Suspect]
     Active Substance: INFLIXIMAB-DYYB
     Dosage: 575 MG, EVERY 6 WEEKS
     Route: 042
     Dates: start: 20191028, end: 20191028
  14. INFLECTRA [Suspect]
     Active Substance: INFLIXIMAB-DYYB
     Dosage: 575 MG, EVERY 6 WEEKS
     Route: 042
     Dates: start: 20200817
  15. PERCOCET [OXYCODONE HYDROCHLORIDE;OXYCODONE TEREPHTHALATE;PARACETAMOL] [Concomitant]
     Active Substance: ACETAMINOPHEN\OXYCODONE HYDROCHLORIDE\OXYCODONE TEREPHTHALATE
     Indication: BACK PAIN
     Dosage: 4 (DF) TABS OF 5/325 MG( DAILY)
     Route: 048
     Dates: start: 2015
  16. INFLECTRA [Suspect]
     Active Substance: INFLIXIMAB-DYYB
     Dosage: 522 MG, EVERY (Q) 0, 2, 6 WEEKS, THEN EVERY 8 WEEKS
     Route: 042
     Dates: start: 20180404, end: 20180404
  17. INFLECTRA [Suspect]
     Active Substance: INFLIXIMAB-DYYB
     Dosage: 575 MG, EVERY 8 WEEKS
     Route: 042
     Dates: start: 20190311, end: 20190311
  18. INFLECTRA [Suspect]
     Active Substance: INFLIXIMAB-DYYB
     Dosage: 575 MG, EVERY 6 WEEKS
     Route: 042
     Dates: start: 20190906, end: 20190906
  19. INFLECTRA [Suspect]
     Active Substance: INFLIXIMAB-DYYB
     Dosage: 575 MG EVERY 6 WEEKS
     Route: 042
     Dates: start: 20200707, end: 20200707
  20. INFLECTRA [Suspect]
     Active Substance: INFLIXIMAB-DYYB
     Dosage: 575 MG EVERY 6 WEEKS
     Route: 042
     Dates: start: 20200928, end: 20200928
  21. INFLECTRA [Suspect]
     Active Substance: INFLIXIMAB-DYYB
     Dosage: 516 MG, EVERY 8 WEEKS
     Route: 042
     Dates: start: 20180725
  22. INFLECTRA [Suspect]
     Active Substance: INFLIXIMAB-DYYB
     Dosage: 575 MG, EVERY 6 WEEKS
     Route: 042
     Dates: start: 20181106, end: 20190715
  23. INFLECTRA [Suspect]
     Active Substance: INFLIXIMAB-DYYB
     Dosage: 600 MG OR 5MG/KG EVERY 6 WEEKS
     Route: 042
     Dates: start: 20201223
  24. ACETAMINOPHEN. [Concomitant]
     Active Substance: ACETAMINOPHEN
     Dosage: 650 MG
     Dates: start: 20201113, end: 20201113
  25. METHOTREXATE. [Concomitant]
     Active Substance: METHOTREXATE
     Indication: CONDITION AGGRAVATED
     Dosage: 25 MG, WEEKLY
     Dates: start: 201509
  26. TAPENTADOL [Concomitant]
     Active Substance: TAPENTADOL
     Indication: PAIN
     Dosage: 50 MG 1 TABLET TWICE DAILY
     Dates: start: 20170629
  27. INFLECTRA [Suspect]
     Active Substance: INFLIXIMAB-DYYB
     Dosage: 575 MG, EVERY 8 WEEKS
     Route: 042
     Dates: start: 20180919, end: 20190919
  28. INFLECTRA [Suspect]
     Active Substance: INFLIXIMAB-DYYB
     Dosage: 600 MG OR 5MG/KG EVERY 6 WEEKS
     Route: 042
     Dates: start: 20210203
  29. METHOTREXATE. [Concomitant]
     Active Substance: METHOTREXATE
     Indication: CONDITION AGGRAVATED
     Dosage: 15 MG, WEEKLY
     Route: 048
     Dates: start: 201509

REACTIONS (19)
  - Blood pressure fluctuation [Unknown]
  - Illness [Unknown]
  - Polyarthritis [Unknown]
  - Therapeutic response shortened [Unknown]
  - Underdose [Unknown]
  - Blood pressure abnormal [Unknown]
  - Nasal congestion [Unknown]
  - Nasopharyngitis [Unknown]
  - Weight increased [Unknown]
  - Headache [Unknown]
  - Heart rate increased [Unknown]
  - Hypertension [Unknown]
  - Pyrexia [Unknown]
  - Drug ineffective [Unknown]
  - Pain [Unknown]
  - Off label use [Unknown]
  - Condition aggravated [Recovering/Resolving]
  - Inappropriate schedule of product administration [Unknown]
  - Off label use [Unknown]

NARRATIVE: CASE EVENT DATE: 2018
